FAERS Safety Report 17202780 (Version 1)
Quarter: 2019Q4

REPORT INFORMATION
  Report Type: Spontaneous
  Country: AR (occurrence: AR)
  Receive Date: 20191226
  Receipt Date: 20191226
  Transmission Date: 20200122
  Serious: Yes (Hospitalization, Other)
  Sender: FDA-Public Use
  Company Number: AR-PFIZER INC-2019539087

PATIENT
  Age: 47 Year
  Sex: Female
  Weight: 70 kg

DRUGS (3)
  1. LEFLUNOMIDE. [Concomitant]
     Active Substance: LEFLUNOMIDE
  2. XELJANZ [Suspect]
     Active Substance: TOFACITINIB CITRATE
     Indication: RHEUMATOID ARTHRITIS
     Dosage: 5 MG, 2X/DAY
     Dates: start: 20181022, end: 201910
  3. PREDNISONA [Concomitant]
     Active Substance: PREDNISONE

REACTIONS (4)
  - Oral mucosal eruption [Unknown]
  - Blister [Unknown]
  - Rash [Unknown]
  - Varicella [Unknown]

NARRATIVE: CASE EVENT DATE: 201910
